FAERS Safety Report 11596232 (Version 1)
Quarter: 2015Q4

REPORT INFORMATION
  Report Type: Report from Study
  Country: NL (occurrence: NL)
  Receive Date: 20151006
  Receipt Date: 20151006
  Transmission Date: 20160304
  Serious: Yes (Death)
  Sender: FDA-Public Use
  Company Number: NL-PFIZER INC-2015236449

PATIENT
  Weight: 3.9 kg

DRUGS (3)
  1. LIDOCAINE. [Suspect]
     Active Substance: LIDOCAINE
     Indication: SEIZURE
     Dosage: BOLUS OF 10 MG/KG IN 10 MIN
     Route: 040
     Dates: start: 1998, end: 1998
  2. LIDOCAINE. [Suspect]
     Active Substance: LIDOCAINE
     Dosage: 24 H INFUSION OF 6 MG/KG/H
     Route: 041
     Dates: start: 1998, end: 1998
  3. PHENYTOIN. [Suspect]
     Active Substance: PHENYTOIN
     Indication: SEIZURE
     Dosage: UNK
     Dates: start: 1998

REACTIONS (2)
  - Bradycardia [Fatal]
  - Hypotension [Fatal]

NARRATIVE: CASE EVENT DATE: 1998
